FAERS Safety Report 17247499 (Version 1)
Quarter: 2020Q1

REPORT INFORMATION
  Report Type: Spontaneous
  Country: US (occurrence: US)
  Receive Date: 20200107
  Receipt Date: 20200107
  Transmission Date: 20200409
  Serious: Yes (Disabling, Other)
  Sender: FDA-Public Use
  Company Number: None

PATIENT
  Age: 16 Year
  Sex: Male
  Weight: 84.15 kg

DRUGS (2)
  1. MELATONIN 10 MG [Concomitant]
     Active Substance: MELATONIN
  2. VYVANSE [Suspect]
     Active Substance: LISDEXAMFETAMINE DIMESYLATE
     Indication: ATTENTION DEFICIT/HYPERACTIVITY DISORDER
     Dosage: ?          QUANTITY:1 CAPSULE(S);?
     Route: 048

REACTIONS (2)
  - Kidney infection [None]
  - Pollakiuria [None]
